FAERS Safety Report 8316982-1 (Version None)
Quarter: 2012Q2

REPORT INFORMATION
  Report Type: 
  Country: None (occurrence: None)
  Receive Date: 20120427
  Receipt Date: 20120419
  Transmission Date: 20120825
  Serious: Yes (Hospitalization, Other)
  Sender: FDA-Public Use
  Company Number: US-BAYER-2011-110392

PATIENT
  Age: 42 Year
  Sex: Female
  Weight: 63 kg

DRUGS (12)
  1. ACETAMINOPHEN W/ CODEINE [Concomitant]
     Dosage: UNK
     Route: 048
     Dates: start: 20090922
  2. PEPCID [Concomitant]
     Indication: GASTRITIS
     Dosage: 20 MG, UNK
     Route: 042
     Dates: start: 20090913
  3. PHENERGAN HCL [Concomitant]
     Indication: GASTRITIS
     Dosage: 50 MG, UNK
     Route: 030
     Dates: start: 20090913
  4. YAZ [Suspect]
     Dosage: UNK
     Dates: start: 20060101, end: 20090101
  5. YASMIN [Suspect]
     Dosage: UNK
     Dates: start: 20060101, end: 20090101
  6. CYMBALTA [Concomitant]
     Dosage: 30 MG, UNK
     Route: 048
     Dates: start: 20090922
  7. DROSPIRENONE AND ETHINYL ESTRADIOL [Suspect]
     Dosage: UNK
     Dates: start: 20060101, end: 20090101
  8. OMEPRAZOLE [Concomitant]
     Dosage: 20MG
     Route: 048
     Dates: start: 20090922
  9. DEMEROL [Concomitant]
     Indication: PAIN
     Dosage: 50 MG, UNK
     Route: 030
     Dates: start: 20090913
  10. TYLENOL W/ CODEINE [Concomitant]
     Indication: PAIN
  11. TRAMADOL HCL [Concomitant]
     Dosage: 50 MG, UNK
     Route: 048
     Dates: start: 20091020
  12. SKELAXIN [Concomitant]
     Dosage: 800 MG, UNK
     Route: 048
     Dates: start: 20091020

REACTIONS (10)
  - PULMONARY EMBOLISM [None]
  - DEPRESSION [None]
  - DEEP VEIN THROMBOSIS [None]
  - MYOCARDIAL INFARCTION [None]
  - ANHEDONIA [None]
  - CEREBROVASCULAR ACCIDENT [None]
  - INJURY [None]
  - PAIN [None]
  - GALLBLADDER DISORDER [None]
  - ANXIETY [None]
